FAERS Safety Report 16005243 (Version 1)
Quarter: 2019Q1

REPORT INFORMATION
  Report Type: Spontaneous
  Country: US (occurrence: US)
  Receive Date: 20190131
  Receipt Date: 20190131
  Transmission Date: 20190418
  Serious: No
  Sender: FDA-Public Use
  Company Number: None

PATIENT
  Age: 53 Year
  Sex: Female

DRUGS (1)
  1. TENOFOVIR DF 300MG TAB (X30) [Suspect]
     Active Substance: TENOFOVIR
     Route: 048
     Dates: start: 201807

REACTIONS (1)
  - Therapy cessation [None]

NARRATIVE: CASE EVENT DATE: 20190128
